FAERS Safety Report 24769901 (Version 1)
Quarter: 2024Q4

REPORT INFORMATION
  Report Type: Spontaneous
  Country: US (occurrence: US)
  Receive Date: 20241224
  Receipt Date: 20241224
  Transmission Date: 20250115
  Serious: No
  Sender: CELLTRION
  Company Number: US-CELLTRION INC.-2024US004861

PATIENT

DRUGS (5)
  1. TRUXIMA [Suspect]
     Active Substance: RITUXIMAB-ABBS
     Indication: Interstitial lung disease
     Dosage: 800 MG FOR 182 DAY CYCLE (28 DAYS
     Dates: start: 20230417
  2. TRUXIMA [Suspect]
     Active Substance: RITUXIMAB-ABBS
     Dosage: 800 MG FOR 182 DAY CYCLE (28 DAYS
     Dates: start: 20230424
  3. TRUXIMA [Suspect]
     Active Substance: RITUXIMAB-ABBS
     Dosage: 800 MG FOR 182 DAY CYCLE (28 DAYS
     Dates: start: 20231002
  4. TRUXIMA [Suspect]
     Active Substance: RITUXIMAB-ABBS
     Dosage: 800 MG FOR 182 DAY CYCLE (28 DAYS
     Dates: start: 20231009
  5. TRUXIMA [Suspect]
     Active Substance: RITUXIMAB-ABBS
     Dosage: 800 MG FOR 182 DAY CYCLE (28 DAYS
     Dates: start: 20231023

REACTIONS (1)
  - Off label use [Unknown]
